FAERS Safety Report 6398357-8 (Version None)
Quarter: 2009Q4

REPORT INFORMATION
  Report Type: 
  Country: None (occurrence: None)
  Receive Date: 20091013
  Receipt Date: 20091001
  Transmission Date: 20100525
  Serious: Yes (Hospitalization)
  Sender: FDA-Public Use
  Company Number: FR-PFIZER INC-2009276662

PATIENT
  Age: 54 Year

DRUGS (3)
  1. ZYVOXID [Suspect]
     Indication: STAPHYLOCOCCAL INFECTION
     Dosage: UNK
     Dates: start: 20090713, end: 20090922
  2. LOVENOX [Suspect]
     Indication: STAPHYLOCOCCAL INFECTION
     Dosage: UNK
     Dates: start: 20090701, end: 20090724
  3. VANCOMYCIN [Concomitant]
     Indication: STAPHYLOCOCCAL INFECTION
     Dosage: UNK
     Dates: start: 20090722, end: 20090729

REACTIONS (5)
  - ANAEMIA [None]
  - HEPARIN-INDUCED THROMBOCYTOPENIA [None]
  - NEUROMYOPATHY [None]
  - QUADRIPARESIS [None]
  - THROMBOCYTOPENIA [None]
